FAERS Safety Report 26026996 (Version 1)
Quarter: 2025Q4

REPORT INFORMATION
  Report Type: Spontaneous
  Country: CN (occurrence: CN)
  Receive Date: 20251111
  Receipt Date: 20251111
  Transmission Date: 20260118
  Serious: Yes (Other)
  Sender: GE HEALTHCARE
  Company Number: None

PATIENT
  Age: 68 Year
  Sex: Male

DRUGS (1)
  1. OMNIPAQUE [Suspect]
     Active Substance: IOHEXOL
     Indication: Angiogram cerebral
     Dosage: 120 ML, TOTAL
     Route: 013
     Dates: start: 20251022

REACTIONS (5)
  - Dysphoria [Recovering/Resolving]
  - Cerebral infarction [Recovering/Resolving]
  - Contrast encephalopathy [Recovering/Resolving]
  - Loss of consciousness [Recovering/Resolving]
  - Aphasia [Recovering/Resolving]

NARRATIVE: CASE EVENT DATE: 20251022
